FAERS Safety Report 22117635 (Version 2)
Quarter: 2023Q1

REPORT INFORMATION
  Report Type: Spontaneous
  Country: US (occurrence: US)
  Receive Date: 20230321
  Receipt Date: 20230329
  Transmission Date: 20230418
  Serious: No
  Sender: FDA-Public Use
  Company Number: US-GLAXOSMITHKLINE-US2023AMR041501

PATIENT
  Age: 61 Year
  Sex: Female

DRUGS (2)
  1. ZEJULA [Suspect]
     Active Substance: NIRAPARIB
     Indication: Fallopian tube cancer
     Dosage: 200 MG, QD (AT BEDTIME)
     Route: 048
     Dates: start: 20230313
  2. ZEJULA [Suspect]
     Active Substance: NIRAPARIB
     Indication: Malignant peritoneal neoplasm
     Dosage: 200 MG, QD (IN THE MORNING)
     Route: 048
     Dates: start: 20230321

REACTIONS (4)
  - Restlessness [Recovered/Resolved]
  - Nausea [Recovered/Resolved]
  - Urinary tract infection [Not Recovered/Not Resolved]
  - Insomnia [Not Recovered/Not Resolved]

NARRATIVE: CASE EVENT DATE: 20230301
